FAERS Safety Report 24353011 (Version 1)
Quarter: 2024Q3

REPORT INFORMATION
  Report Type: Report from Study
  Country: ES (occurrence: ES)
  Receive Date: 20240923
  Receipt Date: 20240923
  Transmission Date: 20241016
  Serious: Yes (Death)
  Sender: BIOGEN
  Company Number: ES-BIOGEN-2024BI01277524

PATIENT

DRUGS (1)
  1. TOFERSEN [Suspect]
     Active Substance: TOFERSEN
     Indication: Amyotrophic lateral sclerosis
     Route: 050
     Dates: end: 20240806

REACTIONS (1)
  - Death [Fatal]
